FAERS Safety Report 22643248 (Version 1)
Quarter: 2023Q2

REPORT INFORMATION
  Report Type: Spontaneous
  Country: CN (occurrence: CN)
  Receive Date: 20230627
  Receipt Date: 20230627
  Transmission Date: 20230722
  Serious: Yes (Other)
  Sender: FDA-Public Use
  Company Number: CN-UCBSA-2023031186

PATIENT
  Age: 6 Year
  Sex: Male
  Weight: 17 kg

DRUGS (3)
  1. KEPPRA [Suspect]
     Active Substance: LEVETIRACETAM
     Indication: Product used for unknown indication
     Dosage: 0.25G/TABLET IN THE MORNING AND EVENING (TOTAL 250 MG/DAY)
     Dates: start: 20191001
  2. KEPPRA [Suspect]
     Active Substance: LEVETIRACETAM
     Dosage: 0.375G IN THE MORNING AND 0.375G IN THE EVENING (TOTAL 750 MILLIGRAM/DAY)
     Dates: start: 202209
  3. PERAMPANEL [Concomitant]
     Active Substance: PERAMPANEL
     Indication: Product used for unknown indication
     Dosage: PERAMPANEL TABLETS (1 AND A HALF TABLETS PER NIGHT)

REACTIONS (6)
  - Loss of consciousness [Not Recovered/Not Resolved]
  - Syncope [Not Recovered/Not Resolved]
  - Constipation [Not Recovered/Not Resolved]
  - Abdominal distension [Not Recovered/Not Resolved]
  - Head titubation [Not Recovered/Not Resolved]
  - Off label use [Unknown]

NARRATIVE: CASE EVENT DATE: 20191001
